FAERS Safety Report 8562378-7 (Version None)
Quarter: 2012Q3

REPORT INFORMATION
  Report Type: 
  Country: None (occurrence: None)
  Receive Date: 20120802
  Receipt Date: 20120702
  Transmission Date: 20120928
  Serious: No
  Sender: FDA-Public Use
  Company Number: US-AMGEN-USASP2011020712

PATIENT
  Age: 73 Year
  Sex: Male

DRUGS (2)
  1. ENBREL [Suspect]
     Indication: PSORIASIS
     Dosage: 50 MG, 2 TIMES/WK
     Dates: start: 20071101
  2. ENBREL [Suspect]
     Indication: PSORIATIC ARTHROPATHY

REACTIONS (5)
  - PSORIATIC ARTHROPATHY [None]
  - THERAPEUTIC RESPONSE DECREASED [None]
  - RED BLOOD CELL SEDIMENTATION RATE DECREASED [None]
  - PSORIASIS [None]
  - HYPERSENSITIVITY [None]
